FAERS Safety Report 5283248-6 (Version None)
Quarter: 2007Q2

REPORT INFORMATION
  Report Type: 
  Country: None (occurrence: None)
  Receive Date: 20070402
  Receipt Date: 20070327
  Transmission Date: 20071010
  Serious: Yes (Hospitalization)
  Sender: FDA-Public Use
  Company Number: DK-GLAXOSMITHKLINE-B0464447A

PATIENT
  Age: 25 Year
  Sex: Female

DRUGS (2)
  1. MALARONE [Suspect]
     Indication: MALARIA PROPHYLAXIS
     Route: 065
     Dates: start: 20070111
  2. CONTRACEPTIVES [Concomitant]

REACTIONS (6)
  - DRUG INEFFECTIVE [None]
  - INSOMNIA [None]
  - MALARIA [None]
  - NAUSEA [None]
  - PYREXIA [None]
  - VERTIGO [None]
